FAERS Safety Report 7603368-8 (Version None)
Quarter: 2011Q3

REPORT INFORMATION
  Report Type: 
  Country: None (occurrence: None)
  Receive Date: 20110712
  Receipt Date: 20110701
  Transmission Date: 20111222
  Serious: Yes (Hospitalization, Other)
  Sender: FDA-Public Use
  Company Number: PHEH2007US03406

PATIENT
  Sex: Male

DRUGS (32)
  1. EFFEXOR XR [Concomitant]
     Dosage: 37.5 UNK, UNK
  2. MORPHINE [Concomitant]
     Dosage: UNK
  3. ZOLOFT [Concomitant]
  4. PRILOSEC [Concomitant]
  5. ATIVAN [Concomitant]
  6. DOXYCYCLINE [Concomitant]
  7. DEPO-TESTOSTERONE [Concomitant]
  8. ATIVAN [Concomitant]
  9. LOPID [Concomitant]
  10. DECADRON [Concomitant]
  11. LEXAPRO [Concomitant]
  12. OXYCODONE HCL [Concomitant]
  13. NEURONTIN [Concomitant]
  14. ASPIRIN [Concomitant]
  15. THORAZINE [Concomitant]
  16. ZOMETA [Suspect]
     Dosage: UNK
  17. TESTIM [Concomitant]
     Dosage: UNK
  18. METAMUCIL-2 [Concomitant]
     Dosage: 0.52 G, UNK
  19. TYLENOL-500 [Concomitant]
  20. PREDNISONE [Concomitant]
  21. INFLUENZA VIRUS VACCINE [Concomitant]
  22. WELLBUTRIN XL [Concomitant]
  23. LOPID [Concomitant]
  24. ASPIRIN [Concomitant]
     Dosage: UNK
  25. FISH OIL [Concomitant]
     Dosage: 500 MG, UNK
  26. PROPRANOLOL [Concomitant]
  27. REVLIMID [Concomitant]
  28. AREDIA [Suspect]
     Dosage: UNK
  29. MULTIPLE VITAMINS [Concomitant]
     Dosage: UNK
  30. ANDROGEL [Concomitant]
     Dosage: UNK
  31. TRAZODONE HCL [Concomitant]
  32. HYDROCORTISONE [Concomitant]

REACTIONS (80)
  - OSTEONECROSIS OF JAW [None]
  - NEUROPATHY PERIPHERAL [None]
  - CHEST DISCOMFORT [None]
  - STRESS [None]
  - NAUSEA [None]
  - DYSPEPSIA [None]
  - PLASMACYTOSIS [None]
  - FEBRILE NEUTROPENIA [None]
  - ABDOMINAL PAIN [None]
  - OSTEOPENIA [None]
  - MYELODYSPLASTIC SYNDROME [None]
  - EMPHYSEMA [None]
  - POIKILOCYTOSIS [None]
  - ADRENAL DISORDER [None]
  - VERTEBRAL FORAMINAL STENOSIS [None]
  - UMBILICAL HERNIA [None]
  - DEEP VEIN THROMBOSIS [None]
  - SPINAL OSTEOARTHRITIS [None]
  - URTICARIA [None]
  - HEPATIC STEATOSIS [None]
  - INTERVERTEBRAL DISC DEGENERATION [None]
  - BONE DISORDER [None]
  - HYPERTRIGLYCERIDAEMIA [None]
  - OSTEOLYSIS [None]
  - SOFT TISSUE DISORDER [None]
  - ACTINIC KERATOSIS [None]
  - ATELECTASIS [None]
  - ABDOMINAL WALL HAEMATOMA [None]
  - BACK PAIN [None]
  - HERPES ZOSTER [None]
  - ESSENTIAL TREMOR [None]
  - MUSCLE STRAIN [None]
  - OEDEMA PERIPHERAL [None]
  - MOUTH HAEMORRHAGE [None]
  - NOCTURIA [None]
  - BACTERIAL INFECTION [None]
  - PAIN [None]
  - OSTEONECROSIS [None]
  - FRACTURED SACRUM [None]
  - COMPRESSION FRACTURE [None]
  - COUGH [None]
  - ANAEMIA [None]
  - CLOSTRIDIUM DIFFICILE COLITIS [None]
  - EPICONDYLITIS [None]
  - DECREASED INTEREST [None]
  - DEPRESSION [None]
  - FLATULENCE [None]
  - FACET JOINT SYNDROME [None]
  - OSTEOMYELITIS [None]
  - HYPERPLASIA [None]
  - SQUAMOUS CELL CARCINOMA [None]
  - ANOGENITAL WARTS [None]
  - INFLAMMATION [None]
  - WEIGHT DECREASED [None]
  - PERITONEAL DISORDER [None]
  - PRIMARY HYPOGONADISM [None]
  - LUNG NEOPLASM [None]
  - PAIN IN JAW [None]
  - BLOOD LACTATE DEHYDROGENASE INCREASED [None]
  - INTERVERTEBRAL DISC PROTRUSION [None]
  - KYPHOSIS [None]
  - ANXIETY [None]
  - METASTASES TO BONE [None]
  - VOMITING [None]
  - DYSPNOEA [None]
  - THROMBOCYTOSIS [None]
  - PANCYTOPENIA [None]
  - DYSTROPHIC CALCIFICATION [None]
  - LUMBAR SPINAL STENOSIS [None]
  - GENERAL PHYSICAL HEALTH DETERIORATION [None]
  - HEADACHE [None]
  - ERECTILE DYSFUNCTION [None]
  - FATIGUE [None]
  - POST HERPETIC NEURALGIA [None]
  - CANCER PAIN [None]
  - FISTULA [None]
  - HYPERCHOLESTEROLAEMIA [None]
  - BONE LESION [None]
  - PUPILS UNEQUAL [None]
  - SEBORRHOEIC KERATOSIS [None]
